FAERS Safety Report 9323494 (Version 1)
Quarter: 2013Q2

REPORT INFORMATION
  Report Type: Spontaneous
  Country: FR (occurrence: FR)
  Receive Date: 20130603
  Receipt Date: 20130603
  Transmission Date: 20140414
  Serious: Yes (Death)
  Sender: FDA-Public Use
  Company Number: FR-JNJFOC-20130516764

PATIENT
  Age: 82 Year
  Sex: Male

DRUGS (7)
  1. XARELTO [Suspect]
     Indication: PRODUCT USED FOR UNKNOWN INDICATION
     Route: 048
  2. CORDARONE [Concomitant]
     Route: 048
  3. LASILIX [Concomitant]
     Route: 048
  4. INEGY [Concomitant]
     Route: 048
  5. MOPRAL [Concomitant]
     Route: 048
  6. SELOKEN (METOPROLOL TARTRATE) [Concomitant]
     Route: 048
  7. COVERSYL [Concomitant]
     Route: 048

REACTIONS (2)
  - Aortic aneurysm rupture [Fatal]
  - Shock haemorrhagic [Fatal]
